FAERS Safety Report 5604960-2 (Version None)
Quarter: 2008Q1

REPORT INFORMATION
  Report Type: 
  Country: None (occurrence: None)
  Receive Date: 20080128
  Receipt Date: 20080104
  Transmission Date: 20080703
  Serious: No
  Sender: FDA-Public Use
  Company Number: US-BOEHRINGER INGELHEIM PHARMACEUTICALS, INC.-2007-BP-25320BP

PATIENT
  Age: 46 Year
  Sex: Female
  Weight: 60.8 kg

DRUGS (1)
  1. SPIRIVA [Suspect]
     Route: 055
     Dates: end: 20071123

REACTIONS (3)
  - POLLAKIURIA [None]
  - RASH [None]
  - URINARY RETENTION [None]
